FAERS Safety Report 6706008-5 (Version None)
Quarter: 2010Q2

REPORT INFORMATION
  Report Type: 
  Country: None (occurrence: None)
  Receive Date: 20100430
  Receipt Date: 20100430
  Transmission Date: 20101027
  Serious: Yes (Hospitalization)
  Sender: FDA-Public Use
  Company Number: None

PATIENT
  Sex: Male
  Weight: 76.1 kg

DRUGS (2)
  1. TAXOL [Suspect]
     Indication: HYPOPHARYNGEAL CANCER
     Dosage: 194MG WEEKLY X 3WKS X 2 CYCLES IV
     Route: 042
     Dates: start: 20100421
  2. CARBOPLATIN [Suspect]
     Indication: HYPOPHARYNGEAL CANCER
     Dosage: 525MG Q28DX2 IV
     Route: 042
     Dates: start: 20100414

REACTIONS (4)
  - ABDOMINAL DISCOMFORT [None]
  - CONSTIPATION [None]
  - ILEUS [None]
  - OBSTRUCTION [None]
